FAERS Safety Report 17153291 (Version 3)
Quarter: 2019Q4

REPORT INFORMATION
  Report Type: Report from Study
  Country: US (occurrence: US)
  Receive Date: 20191213
  Receipt Date: 20191223
  Transmission Date: 20200122
  Serious: Yes (Hospitalization, Other)
  Sender: FDA-Public Use
  Company Number: PHHY2018US017870

PATIENT
  Age: 61 Year
  Sex: Male
  Weight: 95.3 kg

DRUGS (21)
  1. AUBAGIO [Suspect]
     Active Substance: TERIFLUNOMIDE
     Dosage: 14 MG, QD
     Route: 048
     Dates: start: 20180102, end: 20181216
  2. ASPIRIN. [Concomitant]
     Active Substance: ASPIRIN
     Indication: PRODUCT USED FOR UNKNOWN INDICATION
     Dosage: 81 MG, QD
     Route: 048
     Dates: end: 20180304
  3. VITAMINA B 12 [Concomitant]
     Active Substance: CYANOCOBALAMIN
     Indication: PRODUCT USED FOR UNKNOWN INDICATION
     Dosage: 250 UG, QD
     Route: 048
  4. LAMICTAL [Concomitant]
     Active Substance: LAMOTRIGINE
     Indication: PRODUCT USED FOR UNKNOWN INDICATION
     Dosage: 150 MG, BID
     Route: 048
     Dates: start: 20170619, end: 20180305
  5. LOPRESSOR [Concomitant]
     Active Substance: METOPROLOL TARTRATE
     Indication: PRODUCT USED FOR UNKNOWN INDICATION
     Dosage: 100 MG, QD
     Route: 048
     Dates: start: 20180102, end: 20180305
  6. ZOCOR [Concomitant]
     Active Substance: SIMVASTATIN
     Indication: CARDIOVASCULAR EVENT PROPHYLAXIS
  7. AMPYRA [Concomitant]
     Active Substance: DALFAMPRIDINE
     Indication: GAIT DISTURBANCE
     Dosage: 1 DF (10MG), BID (NOT TO EXCEED 2 TABLETS IN 24HOURS)
     Route: 065
     Dates: start: 20180207, end: 20180305
  8. MORPHINE [Concomitant]
     Active Substance: MORPHINE
     Indication: PRODUCT USED FOR UNKNOWN INDICATION
     Dosage: 1 DF (2-4MG), QD
     Route: 065
     Dates: start: 20180305
  9. LOVENOX [Concomitant]
     Active Substance: ENOXAPARIN SODIUM
     Indication: PROPHYLAXIS
     Route: 065
  10. HEPARIN [Concomitant]
     Active Substance: HEPARIN SODIUM
     Indication: THROMBOSIS PROPHYLAXIS
     Route: 065
  11. ISOVUE 370 [Concomitant]
     Active Substance: IOPAMIDOL
     Indication: PRODUCT USED FOR UNKNOWN INDICATION
     Dosage: 80 ML, QD
     Route: 065
     Dates: start: 20180305
  12. NORVASC [Concomitant]
     Active Substance: AMLODIPINE BESYLATE
     Indication: PRODUCT USED FOR UNKNOWN INDICATION
     Dosage: 1 DF, QD
     Route: 048
     Dates: start: 20180102, end: 20180305
  13. ADDERALL [Concomitant]
     Active Substance: AMPHETAMINE ASPARTATE\AMPHETAMINE SULFATE\DEXTROAMPHETAMINE SACCHARATE\DEXTROAMPHETAMINE SULFATE
     Indication: PRODUCT USED FOR UNKNOWN INDICATION
     Dosage: 1 DF (10 MG), BID
     Route: 048
     Dates: start: 20180123, end: 20180305
  14. ATIVAN [Concomitant]
     Active Substance: LORAZEPAM
     Indication: PRODUCT USED FOR UNKNOWN INDICATION
     Dosage: 0.5 MG, UNK
     Route: 048
  15. DUONEB [Concomitant]
     Active Substance: ALBUTEROL SULFATE\IPRATROPIUM BROMIDE
     Indication: DYSPNOEA
     Dosage: 1 DF (0.5 MG-3 MG (2.5 MG BASE)/3 ML NEBULIZER SOLUTION), QID
     Route: 055
     Dates: start: 20160602
  16. DELTASONE [Concomitant]
     Active Substance: PREDNISONE
     Indication: PRODUCT USED FOR UNKNOWN INDICATION
     Dosage: 20 MG, BID
     Route: 048
  17. GILENYA [Suspect]
     Active Substance: FINGOLIMOD HYDROCHLORIDE
     Indication: MULTIPLE SCLEROSIS
     Dosage: 0.5 MG, QD
     Route: 048
     Dates: start: 20161025, end: 20171019
  18. TYLENOL [Concomitant]
     Active Substance: ACETAMINOPHEN
     Indication: PAIN
     Dosage: 1 DF (500-1000 MG), Q6H AS NEEDED
     Route: 048
  19. AUBAGIO [Suspect]
     Active Substance: TERIFLUNOMIDE
     Indication: PRODUCT USED FOR UNKNOWN INDICATION
     Dosage: 28 MG, QD
     Route: 048
     Dates: start: 20171020
  20. VITAMIN D3 [Concomitant]
     Active Substance: CHOLECALCIFEROL
     Indication: PRODUCT USED FOR UNKNOWN INDICATION
     Dosage: 2000 U, BID
     Route: 048
     Dates: end: 20180305
  21. ZOCOR [Concomitant]
     Active Substance: SIMVASTATIN
     Indication: HYPERCHOLESTEROLAEMIA
     Dosage: 80 MG, QD
     Route: 048
     Dates: start: 20180102, end: 20180305

REACTIONS (40)
  - Abdominal pain [Recovered/Resolved]
  - Speech disorder [Unknown]
  - Pyelonephritis [Unknown]
  - Atelectasis [Unknown]
  - Abdominal pain [Recovered/Resolved]
  - Tremor [Unknown]
  - Seizure [Unknown]
  - Uhthoff^s phenomenon [Unknown]
  - Back pain [Unknown]
  - Carbon dioxide increased [Unknown]
  - Left atrial enlargement [Unknown]
  - Abdominal tenderness [Unknown]
  - Ischaemia [Unknown]
  - Electrocardiogram T wave abnormal [Unknown]
  - Encephalopathy [Recovered/Resolved]
  - Headache [Unknown]
  - Hyperkalaemia [Unknown]
  - Electrocardiogram low voltage [Unknown]
  - Gait disturbance [Unknown]
  - Arteriosclerosis [Unknown]
  - Nausea [Recovered/Resolved]
  - Depressed level of consciousness [Unknown]
  - Red cell distribution width increased [Unknown]
  - Hypertensive urgency [Recovered/Resolved]
  - Mental status changes [Unknown]
  - Diarrhoea [Recovered/Resolved]
  - Constipation [Unknown]
  - Blood glucose increased [Unknown]
  - Bundle branch block left [Unknown]
  - Tachycardia [Unknown]
  - Abdominal distension [Unknown]
  - Vomiting [Unknown]
  - Inguinal hernia [Unknown]
  - Diverticulitis [Recovered/Resolved]
  - Blood pressure increased [Unknown]
  - Confusional state [Unknown]
  - Grimacing [Unknown]
  - Adrenal gland cancer [Unknown]
  - Intervertebral disc degeneration [Unknown]
  - Adrenal mass [Unknown]

NARRATIVE: CASE EVENT DATE: 20171219
